FAERS Safety Report 18296725 (Version 1)
Quarter: 2020Q3

REPORT INFORMATION
  Report Type: Spontaneous
  Country: FR (occurrence: FR)
  Receive Date: 20200922
  Receipt Date: 20200922
  Transmission Date: 20201103
  Serious: Yes (Hospitalization, Other)
  Sender: FDA-Public Use
  Company Number: FR-PFIZER INC-2020362125

PATIENT
  Age: 71 Year
  Sex: Male
  Weight: 85 kg

DRUGS (14)
  1. CARBOPLATIN. [Suspect]
     Active Substance: CARBOPLATIN
     Indication: LUNG SQUAMOUS CELL CARCINOMA STAGE IV
     Dosage: 781 MG, CYCLIC (14 DAYS, 1 CYCLE: 18AUG2020)
     Route: 041
     Dates: start: 20200818
  2. BACTRIM [Suspect]
     Active Substance: SULFAMETHOXAZOLE\TRIMETHOPRIM
     Indication: BRONCHITIS
     Dosage: 2 DF, 1X/DAY
     Route: 048
     Dates: start: 20200811, end: 20200825
  3. PEMBROLIZUMAB. [Suspect]
     Active Substance: PEMBROLIZUMAB
     Indication: LUNG SQUAMOUS CELL CARCINOMA STAGE IV
     Dosage: 200 MG, CYCLIC (781 MG, CYCLIC (14 DAYS, 1 CYCLE: 18AUG2020)
     Route: 041
     Dates: start: 20200818
  4. SYMBICORT [Concomitant]
     Active Substance: BUDESONIDE\FORMOTEROL FUMARATE DIHYDRATE
     Dosage: 4 DF, DAILY
     Route: 055
  5. XOLAIR [Concomitant]
     Active Substance: OMALIZUMAB
     Indication: ASTHMA-CHRONIC OBSTRUCTIVE PULMONARY DISEASE OVERLAP SYNDROME
     Dosage: UNK
     Route: 058
  6. GLICLAZIDE [Concomitant]
     Active Substance: GLICLAZIDE
     Dosage: 30 MG, 1X/DAY
     Route: 048
  7. PANTOPRAZOLE [Concomitant]
     Active Substance: PANTOPRAZOLE
     Dosage: 20 MG, 1X/DAY
     Route: 048
  8. PACLITAXEL. [Suspect]
     Active Substance: PACLITAXEL
     Indication: LUNG SQUAMOUS CELL CARCINOMA STAGE IV
     Dosage: 200 MG/M2, CYCLIC (14 DAYS, 1 CYCLE: 18AUG2020)
     Route: 041
     Dates: start: 20200818
  9. LOVENOX [Concomitant]
     Active Substance: ENOXAPARIN SODIUM
     Dosage: 4000 IU, 1X/DAY
     Route: 058
  10. TAHOR [Concomitant]
     Active Substance: ATORVASTATIN CALCIUM
     Indication: DYSLIPIDAEMIA
     Dosage: 10 MG, 1X/DAY
     Route: 048
  11. VICTOZA [Concomitant]
     Active Substance: LIRAGLUTIDE
     Dosage: 1.8 MG, 1X/DAY
     Route: 058
  12. GABAPENTIN. [Concomitant]
     Active Substance: GABAPENTIN
     Indication: PAIN
     Dosage: 900 MG, 1X/DAY
     Route: 048
     Dates: start: 20200818
  13. VERSATIS [Concomitant]
     Active Substance: LIDOCAINE
     Dosage: 2 DF, 1X/DAY
     Route: 003
  14. STAGID [Concomitant]
     Active Substance: METFORMIN PAMOATE
     Indication: TYPE 2 DIABETES MELLITUS
     Dosage: 2100 MG, 1X/DAY
     Route: 048
     Dates: end: 20200827

REACTIONS (3)
  - Diarrhoea [Recovered/Resolved]
  - Vomiting [Recovered/Resolved]
  - Acute kidney injury [Recovered/Resolved]

NARRATIVE: CASE EVENT DATE: 20200818
